FAERS Safety Report 21649942 (Version 1)
Quarter: 2022Q4

REPORT INFORMATION
  Report Type: Other
  Country: US (occurrence: None)
  Receive Date: 20221128
  Receipt Date: 20221128
  Transmission Date: 20230112
  Serious: Yes (Other)
  Sender: FDA-Public Use
  Company Number: US-ROCHE-3223508

PATIENT
  Sex: Male

DRUGS (3)
  1. VEMURAFENIB [Suspect]
     Active Substance: VEMURAFENIB
     Indication: Brain neoplasm
     Route: 065
  2. DABRAFENIB [Concomitant]
     Active Substance: DABRAFENIB
  3. TRAMETINIB [Concomitant]
     Active Substance: TRAMETINIB

REACTIONS (2)
  - Sepsis [Unknown]
  - Renal failure [Unknown]
